FAERS Safety Report 22777511 (Version 2)
Quarter: 2024Q3

REPORT INFORMATION
  Report Type: Report from Study
  Country: CA (occurrence: CA)
  Receive Date: 20230802
  Receipt Date: 20240801
  Transmission Date: 20241017
  Serious: Yes (Hospitalization)
  Sender: NOVARTIS
  Company Number: CA-002147023-NVSC2023CA167341

PATIENT
  Age: 76 Year
  Sex: Female

DRUGS (5)
  1. COSENTYX [Suspect]
     Active Substance: SECUKINUMAB
     Indication: Psoriatic arthropathy
     Dosage: 300 MG, QMO
     Route: 058
     Dates: start: 20200710
  2. METHOTREXATE [Concomitant]
     Active Substance: METHOTREXATE
     Indication: Product used for unknown indication
     Dosage: UNK
     Route: 065
  3. ARAVA [Concomitant]
     Active Substance: LEFLUNOMIDE
     Indication: Product used for unknown indication
     Dosage: UNK
     Route: 065
  4. SULFASALAZINE [Concomitant]
     Active Substance: SULFASALAZINE
     Indication: Product used for unknown indication
     Dosage: UNK
     Route: 065
  5. PARNATE [Concomitant]
     Active Substance: TRANYLCYPROMINE SULFATE
     Indication: Product used for unknown indication
     Dosage: UNK, QD
     Route: 065

REACTIONS (15)
  - Arthralgia [Unknown]
  - Back pain [Unknown]
  - Dysstasia [Unknown]
  - Pain [Recovering/Resolving]
  - Muscle spasms [Unknown]
  - Hypoaesthesia [Unknown]
  - Nausea [Recovering/Resolving]
  - Dyspnoea exertional [Unknown]
  - Foot deformity [Unknown]
  - Gait disturbance [Unknown]
  - Joint swelling [Unknown]
  - Mobility decreased [Unknown]
  - Psoriasis [Unknown]
  - Vulvovaginal rash [Unknown]
  - Limb discomfort [Unknown]
